FAERS Safety Report 8916210 (Version 4)
Quarter: 2013Q2

REPORT INFORMATION
  Report Type: Spontaneous
  Country: US (occurrence: US)
  Receive Date: 20121120
  Receipt Date: 20130416
  Transmission Date: 20140414
  Serious: Yes (Other)
  Sender: FDA-Public Use
  Company Number: US-US-EMD SERONO, INC.-7174670

PATIENT
  Age: 49 Year
  Sex: Female

DRUGS (2)
  1. REBIF [Suspect]
     Indication: MULTIPLE SCLEROSIS
     Route: 058
     Dates: start: 20120430, end: 20121023
  2. METFORMIN [Concomitant]
     Indication: DIABETES MELLITUS

REACTIONS (5)
  - Pseudomonas infection [Recovered/Resolved]
  - Staphylococcal infection [Recovered/Resolved]
  - Dermal cyst [Recovered/Resolved]
  - Injection site cellulitis [Recovered/Resolved]
  - Blood glucose increased [Unknown]
